FAERS Safety Report 6595938-3 (Version None)
Quarter: 2010Q1

REPORT INFORMATION
  Report Type: 
  Country: None (occurrence: None)
  Receive Date: 20100223
  Receipt Date: 20100211
  Transmission Date: 20100710
  Serious: Yes (Death)
  Sender: FDA-Public Use
  Company Number: GB-ELI_LILLY_AND_COMPANY-GB201002003408

PATIENT
  Age: 32 Year
  Sex: Male

DRUGS (2)
  1. ZYPREXA [Suspect]
     Indication: SUICIDAL IDEATION
     Dosage: 2.5 MG, UNKNOWN
     Route: 065
  2. CITALOPRAM HYDROBROMIDE [Concomitant]
     Indication: DEPRESSION
     Dosage: UNK, UNKNOWN
     Route: 065

REACTIONS (1)
  - COMPLETED SUICIDE [None]
